FAERS Safety Report 23057075 (Version 1)
Quarter: 2023Q4

REPORT INFORMATION
  Report Type: Spontaneous
  Country: AU (occurrence: AU)
  Receive Date: 20231012
  Receipt Date: 20231012
  Transmission Date: 20240109
  Serious: Yes (Other)
  Sender: FDA-Public Use
  Company Number: AU-ALKEM LABORATORIES LIMITED-AU-ALKEM-2023-12136

PATIENT
  Age: 37 Year
  Sex: Female

DRUGS (6)
  1. OLANZAPINE [Interacting]
     Active Substance: OLANZAPINE
     Indication: Product used for unknown indication
     Dosage: 20 MILLIGRAM
     Route: 065
  2. OLANZAPINE [Interacting]
     Active Substance: OLANZAPINE
     Dosage: UNK, AFTER 6 MONTHS
     Route: 048
  3. CLOZAPINE [Interacting]
     Active Substance: CLOZAPINE
     Indication: Product used for unknown indication
     Dosage: 300 MG/DAY
     Route: 065
  4. CLOZAPINE [Interacting]
     Active Substance: CLOZAPINE
     Dosage: 225 MILLIGRAM, AT A WEEK OF 2
     Route: 065
  5. CLOZAPINE [Interacting]
     Active Substance: CLOZAPINE
     Dosage: UNK, (75-150) (50) MILLIGRAM, PERSONALISED MAXIMUM, WEEK 2
     Route: 065
  6. CLOZAPINE [Interacting]
     Active Substance: CLOZAPINE
     Dosage: UNK, RECHALLENGED DOSE
     Route: 065

REACTIONS (3)
  - Myocarditis [Unknown]
  - Drug level increased [Unknown]
  - Drug interaction [Unknown]
